FAERS Safety Report 13346720 (Version 1)
Quarter: 2017Q1

REPORT INFORMATION
  Report Type: Spontaneous
  Country: US (occurrence: US)
  Receive Date: 20170317
  Receipt Date: 20170317
  Transmission Date: 20170428
  Serious: No
  Sender: FDA-Public Use
  Company Number: US-AMNEAL PHARMACEUTICALS-2016AMN00682

PATIENT
  Age: 55 Year
  Sex: Male
  Weight: 77.98 kg

DRUGS (1)
  1. SULFAMETHOXAZOLE AND TRIMETHOPRIM [Suspect]
     Active Substance: SULFAMETHOXAZOLE\TRIMETHOPRIM
     Indication: WOUND INFECTION
     Dosage: 2X/DAY
     Route: 048
     Dates: start: 20161024, end: 20161031

REACTIONS (4)
  - Insomnia [Recovered/Resolved]
  - Myalgia [Recovered/Resolved]
  - Rash generalised [Recovered/Resolved]
  - Muscle spasms [Recovered/Resolved]

NARRATIVE: CASE EVENT DATE: 20161027
